FAERS Safety Report 5124526-0 (Version None)
Quarter: 2006Q3

REPORT INFORMATION
  Report Type: 
  Country: None (occurrence: None)
  Receive Date: 20060821
  Receipt Date: 20060502
  Transmission Date: 20061208
  Serious: No
  Sender: FDA-Public Use
  Company Number: TPA2006A00756

PATIENT
  Age: 72 Year
  Sex: Female
  Weight: 56.246 kg

DRUGS (3)
  1. ROZEREM [Suspect]
     Indication: INSOMNIA
     Dosage: 8 MG HS PER ORAL
     Route: 048
     Dates: start: 20060428, end: 20060429
  2. ATENOLOL (ATENOLOL ) (25 MILLIGRAM) [Concomitant]
  3. BONIVA (IBANDRINATE SODIUM) (150 MILLIGRAM) [Concomitant]

REACTIONS (2)
  - POOR QUALITY SLEEP [None]
  - RESTLESS LEGS SYNDROME [None]
